FAERS Safety Report 23198707 (Version 1)
Quarter: 2023Q4

REPORT INFORMATION
  Report Type: Report from Study
  Country: CA (occurrence: CA)
  Receive Date: 20231117
  Receipt Date: 20231117
  Transmission Date: 20240110
  Serious: Yes (Other)
  Sender: FDA-Public Use
  Company Number: CA-BIOGEN-2023BI01235996

PATIENT
  Sex: Female

DRUGS (5)
  1. TECFIDERA [Suspect]
     Active Substance: DIMETHYL FUMARATE
     Indication: Multiple sclerosis
     Route: 050
     Dates: start: 20160302, end: 20200822
  2. SHINGRIX [Suspect]
     Active Substance: RECOMBINANT VARICELLA ZOSTER VIRUS (VZV) GLYCOPROTEIN E
     Indication: Product used for unknown indication
     Route: 050
  3. CODEINE [Suspect]
     Active Substance: CODEINE
     Indication: Product used for unknown indication
     Route: 050
  4. TYLENOL [Concomitant]
     Active Substance: ACETAMINOPHEN
     Indication: Product used for unknown indication
     Route: 050
  5. VITAMIN D [Concomitant]
     Active Substance: VITAMIN D NOS
     Indication: Product used for unknown indication
     Route: 050

REACTIONS (13)
  - Paralysis [Unknown]
  - Skin plaque [Unknown]
  - Hemiparesis [Unknown]
  - Decreased activity [Unknown]
  - Back pain [Unknown]
  - Neck pain [Unknown]
  - Memory impairment [Unknown]
  - Anxiety [Unknown]
  - Fear of falling [Unknown]
  - Balance disorder [Unknown]
  - Fatigue [Unknown]
  - Vision blurred [Unknown]
  - Feeling hot [Unknown]
